FAERS Safety Report 8294047-5 (Version None)
Quarter: 2012Q2

REPORT INFORMATION
  Report Type: 
  Country: None (occurrence: None)
  Receive Date: 20120418
  Receipt Date: 20120413
  Transmission Date: 20120825
  Serious: Yes (Hospitalization, Other)
  Sender: FDA-Public Use
  Company Number: US-PFIZER INC-2012092797

PATIENT
  Sex: Female
  Weight: 79.365 kg

DRUGS (2)
  1. PRISTIQ [Suspect]
     Indication: FIBROMYALGIA
     Dosage: 50 MG, 1X/DAY
     Route: 048
     Dates: start: 20110101
  2. SYMBICORT [Concomitant]
     Indication: ASTHMA
     Dosage: 2 PUFFS TWO TIMES

REACTIONS (3)
  - DEHYDRATION [None]
  - RENAL FAILURE [None]
  - GASTROENTERITIS NOROVIRUS [None]
